FAERS Safety Report 5069261-2 (Version None)
Quarter: 2006Q3

REPORT INFORMATION
  Report Type: 
  Country: None (occurrence: None)
  Receive Date: 20060731
  Receipt Date: 20060718
  Transmission Date: 20061208
  Serious: Yes (Hospitalization, Other)
  Sender: FDA-Public Use
  Company Number: 2006089182

PATIENT
  Age: 74 Year
  Sex: Male
  Weight: 59 kg

DRUGS (4)
  1. CELEBREX [Suspect]
     Indication: ARTHROPATHY
     Dosage: 200 MG
  2. PROTONIX [Concomitant]
  3. VYTORIN [Concomitant]
  4. ACETAMINOPHEN [Concomitant]

REACTIONS (5)
  - DEHYDRATION [None]
  - DYSPNOEA [None]
  - SYNCOPE [None]
  - TACHYCARDIA [None]
  - THERAPY NON-RESPONDER [None]
